FAERS Safety Report 6643302-0 (Version None)
Quarter: 2010Q1

REPORT INFORMATION
  Report Type: 
  Country: None (occurrence: None)
  Receive Date: 20100316
  Receipt Date: 20100303
  Transmission Date: 20100710
  Serious: Yes (Other)
  Sender: FDA-Public Use
  Company Number: JP-1181079

PATIENT
  Age: 70 Year
  Sex: Male

DRUGS (3)
  1. TRAVATAN Z [Suspect]
     Indication: OPEN ANGLE GLAUCOMA
     Dosage: 1 GTT QD, OPHTHALMIC
     Route: 047
     Dates: start: 20090511
  2. TRUSOPT [Concomitant]
  3. DETANTOL (BUNAZOSIN HYDROCHLORIDE) [Concomitant]

REACTIONS (2)
  - OCULAR HYPERAEMIA [None]
  - UVEITIS [None]
